FAERS Safety Report 19973919 (Version 1)
Quarter: 2021Q4

REPORT INFORMATION
  Report Type: Spontaneous
  Country: US (occurrence: US)
  Receive Date: 20211018
  Receipt Date: 20211018
  Transmission Date: 20220304
  Serious: Yes (Hospitalization)
  Sender: FDA-Public Use
  Company Number: None

PATIENT
  Age: 32 Year
  Sex: Female

DRUGS (1)
  1. OPSUMIT [Suspect]
     Active Substance: MACITENTAN
     Indication: Pulmonary hypertension
     Route: 048
     Dates: start: 20200224

REACTIONS (9)
  - Oropharyngeal pain [None]
  - Bronchitis [None]
  - Rash [None]
  - Asthenia [None]
  - Diarrhoea [None]
  - Nausea [None]
  - Vomiting [None]
  - Dehydration [None]
  - Metabolic acidosis [None]

NARRATIVE: CASE EVENT DATE: 20211012
